FAERS Safety Report 7738166-8 (Version None)
Quarter: 2011Q3

REPORT INFORMATION
  Report Type: 
  Country: None (occurrence: None)
  Receive Date: 20110908
  Receipt Date: 20110903
  Transmission Date: 20111222
  Serious: Yes (Hospitalization)
  Sender: FDA-Public Use
  Company Number: US-PFIZER INC-2011206257

PATIENT
  Sex: Female
  Weight: 122 kg

DRUGS (6)
  1. PAXIL [Concomitant]
     Indication: ANXIETY
     Dosage: 1 TAB, 1X/DAY
     Route: 048
     Dates: start: 20110606
  2. CARBOPLATIN [Suspect]
     Indication: BREAST CANCER
     Dosage: AUC 4, C2D23
     Route: 042
     Dates: start: 20110711, end: 20110808
  3. SUNITINIB MALATE [Suspect]
     Indication: BREAST CANCER
     Dosage: 25 MG, C2D23
     Route: 048
     Dates: start: 20110711, end: 20110829
  4. PACLITAXEL [Suspect]
     Indication: BREAST CANCER
     Dosage: 60 MG/M2, C2D23
     Route: 042
     Dates: start: 20110711, end: 20110822
  5. LISINOPRIL [Concomitant]
     Indication: HYPERTENSION
     Dosage: 1 TAB, 1X/DAY
     Route: 048
     Dates: start: 20110606
  6. KLONOPIN [Concomitant]
     Indication: PANIC ATTACK
     Dosage: 1 TAB, 2X/DAY
     Route: 048
     Dates: start: 20110606

REACTIONS (1)
  - SYNCOPE [None]
